FAERS Safety Report 9570802 (Version 1)
Quarter: 2013Q1

REPORT INFORMATION
  Report Type: Spontaneous
  Country: US (occurrence: None)
  Receive Date: 20121212
  Receipt Date: 20121212
  Transmission Date: 20140127
  Serious: No
  Sender: FDA-Public Use
  Company Number: 1209USA007134

PATIENT
  Age: 59 Year
  Sex: Male

DRUGS (3)
  1. REBETOL [Suspect]
     Indication: HEPATITIS C
     Dates: start: 20120403
  2. VICTRELIS [Suspect]
     Indication: HEPATITIS C
     Dates: start: 20120501
  3. PEGASYS [Suspect]
     Indication: HEPATITIS C
     Dates: start: 20120403

REACTIONS (3)
  - Capillary fragility [None]
  - Platelet count decreased [None]
  - Anaemia [None]
